FAERS Safety Report 24614523 (Version 1)
Quarter: 2024Q4

REPORT INFORMATION
  Report Type: Spontaneous
  Country: US (occurrence: US)
  Receive Date: 20241113
  Receipt Date: 20241113
  Transmission Date: 20250114
  Serious: No
  Sender: ABBVIE
  Company Number: US-ABBVIE-5995321

PATIENT
  Age: 4 Year
  Sex: Male

DRUGS (1)
  1. CREON [Suspect]
     Active Substance: PANCRELIPASE AMYLASE\PANCRELIPASE LIPASE\PANCRELIPASE PROTEASE
     Indication: Cystic fibrosis
     Route: 048

REACTIONS (4)
  - Off label use [Unknown]
  - Malabsorption [Not Recovered/Not Resolved]
  - Diarrhoea [Not Recovered/Not Resolved]
  - Steatorrhoea [Not Recovered/Not Resolved]
